FAERS Safety Report 6758588-1 (Version None)
Quarter: 2010Q2

REPORT INFORMATION
  Report Type: 
  Country: None (occurrence: None)
  Receive Date: 20100602
  Receipt Date: 20100517
  Transmission Date: 20101027
  Serious: Yes (Hospitalization)
  Sender: FDA-Public Use
  Company Number: IDA-00367

PATIENT
  Age: 86 Year
  Sex: Female

DRUGS (6)
  1. PROPRANOLOL [Suspect]
     Dosage: .5 DF BID / .5 DF DAILY ORAL / ORAL
     Route: 048
     Dates: start: 20090101, end: 20100420
  2. PROPRANOLOL [Suspect]
     Dosage: .5 DF BID / .5 DF DAILY ORAL / ORAL
     Route: 048
     Dates: start: 20100420
  3. EXELON [Suspect]
     Indication: DEMENTIA ALZHEIMER'S TYPE
     Dosage: ORAL
     Route: 048
     Dates: start: 20090101, end: 20100420
  4. ASPIRIN [Concomitant]
  5. FENOFIBRATE [Concomitant]
  6. RISPERDAL [Concomitant]

REACTIONS (6)
  - BLOOD PRESSURE INCREASED [None]
  - ELECTROCARDIOGRAM QT PROLONGED [None]
  - GENERAL PHYSICAL HEALTH DETERIORATION [None]
  - LOSS OF CONSCIOUSNESS [None]
  - MALAISE [None]
  - SINUS BRADYCARDIA [None]
